FAERS Safety Report 17274902 (Version 1)
Quarter: 2020Q1

REPORT INFORMATION
  Report Type: Spontaneous
  Country: US (occurrence: US)
  Receive Date: 20200116
  Receipt Date: 20200116
  Transmission Date: 20200409
  Serious: No
  Sender: FDA-Public Use
  Company Number: US-DRREDDYS-USA/USA/20/0118150

PATIENT

DRUGS (1)
  1. ZENATANE [Suspect]
     Active Substance: ISOTRETINOIN
     Indication: PRODUCT USED FOR UNKNOWN INDICATION
     Dosage: RMA ISSUE DATES WERE NOTED AS: 15 AUGUST 2019, 16 SEPTEMBER 2019, 16 OCTOBER 2019 AND 05 DECEMBER 20
     Route: 048

REACTIONS (2)
  - Weight decreased [Unknown]
  - Arthralgia [Unknown]
